FAERS Safety Report 5767475-7 (Version None)
Quarter: 2008Q2

REPORT INFORMATION
  Report Type: 
  Country: None (occurrence: None)
  Receive Date: 20080611
  Receipt Date: 20080611
  Transmission Date: 20081010
  Serious: Yes (Hospitalization)
  Sender: FDA-Public Use
  Company Number: None

PATIENT
  Age: 77 Year
  Sex: Male
  Weight: 100 kg

DRUGS (1)
  1. IRON DEXTRAN [Suspect]
     Indication: ANAEMIA
     Dosage: 100 MG EVERY DAY IM
     Route: 030
     Dates: start: 20080606, end: 20080607

REACTIONS (6)
  - CHILLS [None]
  - DYSPNOEA [None]
  - HEADACHE [None]
  - PYREXIA [None]
  - RASH [None]
  - TACHYCARDIA [None]
